FAERS Safety Report 25060430 (Version 2)
Quarter: 2025Q2

REPORT INFORMATION
  Report Type: Spontaneous
  Country: CL (occurrence: CL)
  Receive Date: 20250310
  Receipt Date: 20250514
  Transmission Date: 20250716
  Serious: Yes (Hospitalization, Other)
  Sender: JOHNSON AND JOHNSON
  Company Number: CL-JNJFOC-20250274616

PATIENT
  Age: 37 Year
  Sex: Male

DRUGS (3)
  1. REMICADE [Suspect]
     Active Substance: INFLIXIMAB
     Indication: Crohn^s disease
     Route: 041
     Dates: start: 20220128, end: 20220205
  2. ADALIMUMAB [Suspect]
     Active Substance: ADALIMUMAB
     Indication: Product used for unknown indication
     Route: 065
     Dates: start: 20220612
  3. CEFTRIAXONE [Suspect]
     Active Substance: CEFTRIAXONE
     Indication: Product used for unknown indication
     Route: 065

REACTIONS (14)
  - Pleural effusion [Not Recovered/Not Resolved]
  - Crohn^s disease [Recovering/Resolving]
  - Septic shock [Not Recovered/Not Resolved]
  - Colitis [Unknown]
  - Hospitalisation [Unknown]
  - Colectomy [Unknown]
  - Anal abscess [Unknown]
  - Intestinal obstruction [Unknown]
  - Gallbladder polyp [Unknown]
  - Rhinitis allergic [Unknown]
  - Dyslipidaemia [Unknown]
  - Urticaria [Unknown]
  - Pyrexia [Unknown]
  - Hypersensitivity [Unknown]

NARRATIVE: CASE EVENT DATE: 20220101
